FAERS Safety Report 5824431-8 (Version None)
Quarter: 2008Q3

REPORT INFORMATION
  Report Type: 
  Country: None (occurrence: None)
  Receive Date: 20080728
  Receipt Date: 20080724
  Transmission Date: 20090109
  Serious: Yes (Life-Threatening, Hospitalization, Other)
  Sender: FDA-Public Use
  Company Number: B0521307A

PATIENT
  Age: 33 Year
  Sex: Female
  Weight: 93 kg

DRUGS (1)
  1. AUGMENTIN '125' [Suspect]
     Indication: CHOLECYSTECTOMY
     Dosage: 375MG UNKNOWN
     Route: 048
     Dates: start: 20080307

REACTIONS (4)
  - ACUTE HEPATIC FAILURE [None]
  - ALANINE AMINOTRANSFERASE INCREASED [None]
  - MALAISE [None]
  - RENAL FAILURE [None]
